FAERS Safety Report 19873616 (Version 1)
Quarter: 2021Q3

REPORT INFORMATION
  Report Type: Report from Study
  Country: CA (occurrence: CA)
  Receive Date: 20210922
  Receipt Date: 20210922
  Transmission Date: 20211014
  Serious: Yes (Hospitalization, Other)
  Sender: FDA-Public Use
  Company Number: CA-TAKEDA-2021TUS058366

PATIENT
  Age: 73 Year
  Sex: Male

DRUGS (2)
  1. SALOFALK [Concomitant]
     Dosage: UNK
     Dates: start: 2014
  2. VEDOLIZUMAB [Suspect]
     Active Substance: VEDOLIZUMAB
     Indication: COLITIS ULCERATIVE
     Dosage: 300 MILLIGRAM
     Route: 042
     Dates: start: 20180704

REACTIONS (2)
  - Bacterial infection [Unknown]
  - Heart injury [Unknown]
